FAERS Safety Report 4393218-8 (Version None)
Quarter: 2004Q3

REPORT INFORMATION
  Report Type: 
  Country: None (occurrence: None)
  Receive Date: 20040701
  Receipt Date: 20040617
  Transmission Date: 20050211
  Serious: Yes (Hospitalization)
  Sender: FDA-Public Use
  Company Number: 04P-056-0264248-00

PATIENT
  Age: 40 Year
  Sex: Male

DRUGS (2)
  1. KALETRA [Suspect]
  2. ZIDOVUDINE W/LAMIVUDINE [Suspect]

REACTIONS (3)
  - COMA [None]
  - HYPERTRIGLYCERIDAEMIA [None]
  - PANCREATITIS [None]
